FAERS Safety Report 9215062 (Version 1)
Quarter: 2013Q2

REPORT INFORMATION
  Report Type: Not Available
  Country: US (occurrence: US)
  Receive Date: 20130405
  Receipt Date: 20130405
  Transmission Date: 20140414
  Serious: Yes (Hospitalization)
  Sender: FDA-Public Use
  Company Number: US-LUNDBECK-DKLU1089985

PATIENT
  Sex: Female

DRUGS (3)
  1. SABRIL (TABLET) [Suspect]
     Indication: PRODUCT USED FOR UNKNOWN INDICATION
     Dates: start: 20121012
  2. ONFI [Suspect]
     Indication: PRODUCT USED FOR UNKNOWN INDICATION
  3. TRILEPTAL [Concomitant]
     Indication: PRODUCT USED FOR UNKNOWN INDICATION

REACTIONS (2)
  - Bronchopneumonia [Unknown]
  - Pregnancy [Unknown]
